FAERS Safety Report 7419883-6 (Version None)
Quarter: 2011Q2

REPORT INFORMATION
  Report Type: 
  Country: None (occurrence: None)
  Receive Date: 20110418
  Receipt Date: 20110405
  Transmission Date: 20111010
  Serious: Yes (Death)
  Sender: FDA-Public Use
  Company Number: DK-SANOFI-AVENTIS-2011SA020560

PATIENT

DRUGS (7)
  1. TRAMADOL HYDROCHLORIDE [Suspect]
     Route: 065
  2. FENTANYL [Suspect]
     Route: 065
  3. ZOLPIDEM TARTRATE [Suspect]
     Route: 065
  4. MEPROBAMATE [Suspect]
     Route: 065
  5. BUPRENORPHINE [Suspect]
     Route: 065
  6. ZOPICLONE [Suspect]
     Route: 065
  7. OXYCODONE HCL [Suspect]
     Route: 065

REACTIONS (2)
  - TOXICITY TO VARIOUS AGENTS [None]
  - SUBSTANCE ABUSE [None]
